FAERS Safety Report 15357058 (Version 1)
Quarter: 2018Q3

REPORT INFORMATION
  Report Type: Spontaneous
  Country: US (occurrence: US)
  Receive Date: 20180830
  Receipt Date: 20180830
  Transmission Date: 20181010
  Serious: No
  Sender: FDA-Public Use
  Company Number: None

PATIENT
  Age: 61 Year
  Sex: Male

DRUGS (1)
  1. TRIUMEQ [Suspect]
     Active Substance: ABACAVIR SULFATE\DOLUTEGRAVIR SODIUM\LAMIVUDINE
     Dosage: OTHER DOSE:600?50?300;?
     Route: 048
     Dates: start: 20171001

REACTIONS (2)
  - Drug dose omission [None]
  - Inability to afford medication [None]

NARRATIVE: CASE EVENT DATE: 20180830
